FAERS Safety Report 4721484-5 (Version None)
Quarter: 2005Q3

REPORT INFORMATION
  Report Type: 
  Country: None (occurrence: None)
  Receive Date: 20050721
  Receipt Date: 20041006
  Transmission Date: 20060218
  Serious: No
  Sender: FDA-Public Use
  Company Number: US-BRISTOL-MYERS SQUIBB COMPANY-12724217

PATIENT
  Age: 77 Year
  Sex: Male
  Weight: 68 kg

DRUGS (9)
  1. COUMADIN [Suspect]
     Indication: STENT PLACEMENT
     Dosage: STARTED THERAPY ^ABOUT 4 YEARS AGO^
  2. PLAVIX [Suspect]
     Indication: STENT PLACEMENT
     Dosage: REDUCED TO 1/2 TABLET IN 2004
     Route: 048
  3. ASPIRIN [Concomitant]
  4. SOTALOL HCL [Concomitant]
  5. ZETIA [Concomitant]
  6. MAXZIDE [Concomitant]
     Dosage: DOSAGE FORM = TABLET
  7. VITAMIN E [Concomitant]
     Dosage: DOSAGE FORM = TABLET
  8. XALATAN [Concomitant]
     Route: 047
  9. PROVENTIL [Concomitant]

REACTIONS (2)
  - BLOOD URINE PRESENT [None]
  - CONTUSION [None]
